FAERS Safety Report 17105561 (Version 2)
Quarter: 2020Q1

REPORT INFORMATION
  Report Type: Spontaneous
  Country: GB (occurrence: GB)
  Receive Date: 20191203
  Receipt Date: 20200318
  Transmission Date: 20200409
  Serious: Yes (Other)
  Sender: FDA-Public Use
  Company Number: GB-PFIZER INC-2019512939

PATIENT
  Age: 10 Year
  Sex: Female
  Weight: 35 kg

DRUGS (4)
  1. BECLOMETASONE [Concomitant]
     Active Substance: BECLOMETHASONE DIPROPIONATE
     Indication: HEADACHE
     Dosage: 4 DF, 1X/DAY (PUFF IN NOSTRILS)
     Dates: start: 20190429
  2. PROCHLORPERAZINE. [Concomitant]
     Active Substance: PROCHLORPERAZINE
     Indication: DIZZINESS
     Dosage: 6 MG, 1X/DAY
     Dates: start: 20190427
  3. CALPOL [Concomitant]
     Active Substance: ACETAMINOPHEN
     Indication: HEADACHE
     Dosage: UNK
     Dates: start: 20190427
  4. IBUPROFEN. [Suspect]
     Active Substance: IBUPROFEN
     Indication: VIRAL INFECTION
     Dosage: 900 MG, 1X/DAY
     Route: 048
     Dates: start: 20190428, end: 20190501

REACTIONS (3)
  - Anaemia [Recovered/Resolved]
  - Upper gastrointestinal haemorrhage [Recovering/Resolving]
  - Duodenal ulcer [Recovered/Resolved]

NARRATIVE: CASE EVENT DATE: 20190501
